FAERS Safety Report 24994364 (Version 1)
Quarter: 2025Q1

REPORT INFORMATION
  Report Type: Spontaneous
  Country: US (occurrence: None)
  Receive Date: 20250220
  Receipt Date: 20250220
  Transmission Date: 20250409
  Serious: Yes (Death, Hospitalization)
  Sender: FDA-CTU
  Company Number: None

PATIENT
  Age: 46 Year
  Sex: Female

DRUGS (1)
  1. ADEMPAS [Suspect]
     Active Substance: RIOCIGUAT
     Indication: Pulmonary hypertension

REACTIONS (12)
  - Upper respiratory tract infection [None]
  - Abdominal distension [None]
  - Diarrhoea [None]
  - Gastrointestinal haemorrhage [None]
  - Shock haemorrhagic [None]
  - Red blood cell transfusion [None]
  - Hepatic function abnormal [None]
  - Hepatic steatosis [None]
  - Mesenteric vein thrombosis [None]
  - Portal vein thrombosis [None]
  - Pneumonia [None]
  - Cardiac arrest [None]

NARRATIVE: CASE EVENT DATE: 20250214
